FAERS Safety Report 5165744-5 (Version None)
Quarter: 2006Q4

REPORT INFORMATION
  Report Type: 
  Country: None (occurrence: None)
  Receive Date: 20061128
  Receipt Date: 20061113
  Transmission Date: 20070319
  Serious: Yes (Life-Threatening)
  Sender: FDA-Public Use
  Company Number: 2006RR-04576

PATIENT
  Age: 30 Year
  Sex: Female

DRUGS (4)
  1. NAPROXEN [Suspect]
     Dosage: ORAL
     Route: 048
  2. IBUPROFEN [Suspect]
     Dosage: ORAL
     Route: 048
  3. CELECOXIB (CELECOXIB), 400MG [Suspect]
     Dosage: 400 MG,
  4. ASPIRIN [Suspect]
     Dosage: 188 MG,

REACTIONS (5)
  - DRUG HYPERSENSITIVITY [None]
  - ERYTHEMA MULTIFORME [None]
  - NASAL CONGESTION [None]
  - PULMONARY OEDEMA [None]
  - SHOCK [None]
